FAERS Safety Report 8809610 (Version 2)
Quarter: 2012Q4

REPORT INFORMATION
  Report Type: 
  Country: US (occurrence: US)
  Receive Date: 20120926
  Receipt Date: 20121015
  Transmission Date: 20130627
  Serious: No
  Sender: FDA-Public Use
  Company Number: US-ASTRAZENECA-2012SE70484

PATIENT
  Age: 35 Year
  Sex: Male
  Weight: 90.7 kg

DRUGS (6)
  1. SEROQUEL [Suspect]
     Indication: BIPOLAR DISORDER
     Route: 048
     Dates: start: 2009
  2. LITHIUM [Suspect]
     Indication: BIPOLAR DISORDER
     Route: 048
     Dates: start: 2006
  3. LITHIUM [Suspect]
     Indication: BIPOLAR DISORDER
     Route: 048
     Dates: start: 2007
  4. LITHIUM [Suspect]
     Indication: BIPOLAR DISORDER
     Route: 048
     Dates: start: 2010
  5. BUPROPION HCL [Concomitant]
     Indication: BIPOLAR DISORDER
  6. WELLBUTRIN [Concomitant]
     Indication: BIPOLAR DISORDER

REACTIONS (7)
  - Insomnia [Unknown]
  - Initial insomnia [Unknown]
  - Mania [Unknown]
  - Malaise [Unknown]
  - Feeling abnormal [Unknown]
  - Somnolence [Unknown]
  - Drug dose omission [Unknown]
